FAERS Safety Report 7357794-5 (Version None)
Quarter: 2011Q1

REPORT INFORMATION
  Report Type: 
  Country: None (occurrence: None)
  Receive Date: 20110317
  Receipt Date: 20110308
  Transmission Date: 20110831
  Serious: Yes (Death, Other)
  Sender: FDA-Public Use
  Company Number: JP-AMGEN-JPNCT2011010561

PATIENT
  Age: 60 Year
  Sex: Male
  Weight: 60 kg

DRUGS (13)
  1. PANITUMUMAB [Suspect]
     Indication: COLORECTAL CANCER
     Dosage: 6 MG/KG, Q2WK
     Route: 041
     Dates: start: 20101014, end: 20101014
  2. ANTIHISTAMINES [Concomitant]
     Indication: PROPHYLAXIS
     Dosage: UNK
     Route: 065
  3. 5-FU [Suspect]
     Indication: COLORECTAL CANCER
     Route: 040
     Dates: start: 20101014, end: 20101207
  4. LOXONIN [Concomitant]
     Dosage: UNK
     Route: 048
  5. CORTICOSTEROIDS [Concomitant]
     Indication: PROPHYLAXIS
     Dosage: UNK
     Route: 065
  6. DUROTEP MT [Concomitant]
     Route: 062
  7. DUROTEP TAKEDA [Concomitant]
     Dosage: UNK
     Route: 062
  8. PANITUMUMAB [Suspect]
     Dosage: 4.8 MG/KG, Q2WK
     Route: 041
     Dates: start: 20101104, end: 20101104
  9. PANITUMUMAB [Suspect]
     Dosage: 6 MG/KG, Q2WK
     Route: 041
     Dates: start: 20101122, end: 20101221
  10. NAUZELIN [Concomitant]
     Dosage: UNK
     Route: 048
  11. CALCIUM LEVOFOLINATE [Concomitant]
     Indication: COLORECTAL CANCER
     Route: 041
     Dates: start: 20101014, end: 20101207
  12. CAMPTOSAR [Suspect]
     Indication: COLORECTAL CANCER
     Route: 041
     Dates: start: 20101014, end: 20101207
  13. 5-FU [Suspect]
     Route: 041
     Dates: start: 20101014, end: 20101207

REACTIONS (5)
  - RASH [None]
  - STOMATITIS [None]
  - COLORECTAL CANCER [None]
  - DRY SKIN [None]
  - WHITE BLOOD CELL COUNT DECREASED [None]
